FAERS Safety Report 21107105 (Version 1)
Quarter: 2022Q3

REPORT INFORMATION
  Report Type: Spontaneous
  Country: US (occurrence: None)
  Receive Date: 20220720
  Receipt Date: 20220720
  Transmission Date: 20221027
  Serious: Yes (Hospitalization)
  Sender: FDA-Public Use
  Company Number: None

PATIENT
  Age: 71 Year
  Sex: Male

DRUGS (1)
  1. EPCLUSA [Suspect]
     Active Substance: SOFOSBUVIR\VELPATASVIR
     Dosage: 400MG-100 MG  DAILY ORAL??DATE OF USE  JUNE 2024 - PRESENT?FREQUENCY : DAILY;?
     Route: 048

REACTIONS (1)
  - Emergency care [None]

NARRATIVE: CASE EVENT DATE: 20220720
